FAERS Safety Report 7559615-4 (Version None)
Quarter: 2011Q2

REPORT INFORMATION
  Report Type: 
  Country: None (occurrence: None)
  Receive Date: 20110617
  Receipt Date: 20110617
  Transmission Date: 20111010
  Serious: Yes (Life-Threatening, Hospitalization, Other)
  Sender: FDA-Public Use
  Company Number: None

PATIENT
  Sex: Female

DRUGS (3)
  1. TRAZODONE HCL [Concomitant]
  2. SAVELLA [Suspect]
     Indication: DEPRESSION
     Dosage: DAY 1 TOOK 1, DAY 2 + 3 TOOK 2
     Dates: start: 20101001, end: 20101003
  3. CONCERTA [Concomitant]

REACTIONS (9)
  - TREMOR [None]
  - SCREAMING [None]
  - DYSPNOEA [None]
  - APNOEA [None]
  - VISUAL IMPAIRMENT [None]
  - ARTHRALGIA [None]
  - SUICIDAL IDEATION [None]
  - ANXIETY [None]
  - MENTAL DISORDER [None]
